FAERS Safety Report 9218770 (Version 2)
Quarter: 2013Q2

REPORT INFORMATION
  Report Type: Spontaneous
  Country: BR (occurrence: BR)
  Receive Date: 20130409
  Receipt Date: 20130510
  Transmission Date: 20140414
  Serious: Yes (Hospitalization)
  Sender: FDA-Public Use
  Company Number: BR-B.I. PHARMACEUTICALS,INC./RIDGEFIELD-2013-BR-00385BR

PATIENT
  Age: 81 Year
  Sex: Male
  Weight: 67 kg

DRUGS (3)
  1. SPIRIVA RESPIMAT [Suspect]
     Indication: CHRONIC OBSTRUCTIVE PULMONARY DISEASE
     Dosage: 5 MCG
     Route: 055
     Dates: start: 2005
  2. SINVASTATINA [Concomitant]
     Indication: BLOOD CHOLESTEROL INCREASED
     Dosage: ONCE A DAY
     Dates: start: 201212
  3. METFORMINA [Concomitant]
     Indication: DIABETES MELLITUS
     Dosage: ONCE A DAY
     Dates: start: 201212

REACTIONS (4)
  - Joint injury [Not Recovered/Not Resolved]
  - Labyrinthitis [Not Recovered/Not Resolved]
  - Fall [Not Recovered/Not Resolved]
  - Femur fracture [Not Recovered/Not Resolved]
